FAERS Safety Report 10036377 (Version 1)
Quarter: 2014Q1

REPORT INFORMATION
  Report Type: Spontaneous
  Country: TR (occurrence: TR)
  Receive Date: 20140325
  Receipt Date: 20140325
  Transmission Date: 20141002
  Serious: Yes (Other)
  Sender: FDA-Public Use
  Company Number: PHHY2014TR031782

PATIENT
  Age: 17 Month
  Sex: Male

DRUGS (3)
  1. VALPROIC ACID [Suspect]
     Dosage: 50 MG/KG, QD
  2. PHENOBARBITAL [Suspect]
     Dosage: 5 MG/KG, QD
  3. ANTIBIOTICS [Concomitant]

REACTIONS (3)
  - Nonketotic hyperglycinaemia [Unknown]
  - Hyperammonaemia [Recovered/Resolved]
  - Confusional state [Unknown]
